FAERS Safety Report 9724471 (Version 3)
Quarter: 2013Q4

REPORT INFORMATION
  Report Type: Report from Study
  Country: JP (occurrence: JP)
  Receive Date: 20131202
  Receipt Date: 20131230
  Transmission Date: 20140711
  Serious: Yes (Hospitalization)
  Sender: FDA-Public Use
  Company Number: JP-PFIZER INC-2013341937

PATIENT
  Age: 65 Year
  Sex: Male
  Weight: 88.2 kg

DRUGS (8)
  1. OLMETEC [Suspect]
     Indication: HYPERTENSION
     Dosage: 20 MG, 1X/DAY
     Route: 048
     Dates: start: 20120602
  2. BLINDED CS-747S [Suspect]
     Indication: ISCHAEMIC STROKE
     Dosage: 1 DF, 1X/DAY
     Route: 048
     Dates: start: 20120609
  3. LIVALO [Concomitant]
     Indication: LIPID METABOLISM DISORDER
     Dosage: 1 MG, 1X/DAY
     Route: 048
     Dates: start: 20120512
  4. REBAMIPIDE [Concomitant]
     Indication: GASTRITIS PROPHYLAXIS
     Dosage: 100 MG, 1X/DAY
     Route: 048
     Dates: start: 20120510
  5. AMLODIPINE BESILATE [Concomitant]
     Indication: HYPERTENSION
     Dosage: 5 MG, 1X/DAY
     Route: 048
     Dates: start: 20120602
  6. DICLOFENAC SODIUM [Concomitant]
     Indication: BACK PAIN
     Dosage: 1 DF, 1X/DAY (OPTIMAL DOSE)
     Route: 050
     Dates: start: 20120706
  7. VOLTAREN [Concomitant]
     Indication: BACK PAIN
     Dosage: 25 MG, AS NEEDED
     Route: 048
     Dates: start: 20130118
  8. CELECOXIB [Concomitant]
     Indication: BACK PAIN
     Dosage: 100 MG, 2X/DAY
     Route: 048
     Dates: start: 20131003

REACTIONS (3)
  - Subdural haematoma [Recovering/Resolving]
  - Brain contusion [Recovering/Resolving]
  - Subarachnoid haemorrhage [Recovering/Resolving]
